FAERS Safety Report 10277986 (Version 1)
Quarter: 2014Q3

REPORT INFORMATION
  Report Type: Other
  Country: US (occurrence: US)
  Receive Date: 20140704
  Receipt Date: 20140704
  Transmission Date: 20150326
  Serious: No
  Sender: FDA-Public Use
  Company Number: US-LUPIN PHARMACEUTICALS INC.-2014-01001

PATIENT
  Sex: Female

DRUGS (1)
  1. DULOXETINE DELAYED-RELEASE 60 MG CAPSULES USP [Suspect]
     Active Substance: DULOXETINE
     Indication: FIBROMYALGIA
     Route: 065

REACTIONS (6)
  - Fibromyalgia [Recovering/Resolving]
  - Off label use [Recovered/Resolved]
  - Asthenia [Recovering/Resolving]
  - Drug ineffective [Unknown]
  - Fatigue [Recovering/Resolving]
  - Product substitution issue [Unknown]
